FAERS Safety Report 11663774 (Version 1)
Quarter: 2015Q4

REPORT INFORMATION
  Report Type: Spontaneous
  Country: US (occurrence: None)
  Receive Date: 20151026
  Receipt Date: 20151026
  Transmission Date: 20160304
  Serious: No
  Sender: FDA-Public Use
  Company Number: None

PATIENT
  Age: 27 Year
  Sex: Female
  Weight: 48.08 kg

DRUGS (2)
  1. LO LOESTRIN FE [Suspect]
     Active Substance: ETHINYL ESTRADIOL\NORETHINDRONE ACETATE
     Indication: CONTRACEPTION
     Route: 048
     Dates: start: 20151019, end: 20151023
  2. ADDERAL XR [Concomitant]

REACTIONS (3)
  - Application site ulcer [None]
  - Cystitis [None]
  - Urinary tract infection [None]

NARRATIVE: CASE EVENT DATE: 20151022
